FAERS Safety Report 8600557 (Version 2)
Quarter: 2012Q4

REPORT INFORMATION
  Report Type: 
  Country: US (occurrence: US)
  Receive Date: 20120606
  Receipt Date: 20121025
  Transmission Date: 20130627
  Serious: Yes (Hospitalization)
  Sender: FDA-Public Use
  Company Number: US-PFIZER INC-2012132673

PATIENT
  Sex: Female

DRUGS (4)
  1. LYRICA [Suspect]
     Indication: PAIN
     Dosage: 25 mg, 1x/day
     Route: 048
     Dates: start: 2007, end: 2007
  2. LYRICA [Suspect]
     Indication: NEUROPATHY PERIPHERAL
     Dosage: 25 mg, 2x/day
     Route: 048
     Dates: start: 2007
  3. LYRICA [Suspect]
     Indication: NECK PAIN
     Dosage: UNK
     Route: 048
  4. HYDROCHLOROTHIAZIDE TRIAMTERENE [Suspect]
     Indication: BLOOD PRESSURE ABNORMAL
     Dosage: UNK

REACTIONS (9)
  - Blood potassium decreased [Unknown]
  - Blood sodium decreased [Unknown]
  - Fibromyalgia [Not Recovered/Not Resolved]
  - Herpes zoster [Unknown]
  - Pain [Not Recovered/Not Resolved]
  - Arthralgia [Unknown]
  - Plantar fasciitis [Unknown]
  - Arrhythmia [Unknown]
  - Constipation [Unknown]
